FAERS Safety Report 6752310-0 (Version None)
Quarter: 2010Q2

REPORT INFORMATION
  Report Type: 
  Country: None (occurrence: None)
  Receive Date: 20100602
  Receipt Date: 20100518
  Transmission Date: 20101027
  Serious: Yes (Hospitalization)
  Sender: FDA-Public Use
  Company Number: AU-JNJFOC-20100508118

PATIENT

DRUGS (7)
  1. INFLIXIMAB [Suspect]
     Indication: CROHN'S DISEASE
     Route: 042
  2. INFLIXIMAB [Suspect]
     Dosage: INDUCTION DOSES, WEEKS 0, 2 AND 6
     Route: 042
  3. AZATHIOPRINE SODIUM [Concomitant]
  4. METHOTREXATE [Concomitant]
  5. HYDROCORTISONE [Concomitant]
     Indication: PREMEDICATION
     Route: 042
  6. PROMETHAZINE [Concomitant]
     Indication: PREMEDICATION
     Route: 042
  7. PARACETAMOL [Concomitant]
     Indication: PREMEDICATION
     Route: 048

REACTIONS (3)
  - ANAL ABSCESS [None]
  - CROHN'S DISEASE [None]
  - PNEUMONIA [None]
